FAERS Safety Report 4546114-7 (Version None)
Quarter: 2005Q1

REPORT INFORMATION
  Report Type: 
  Country: None (occurrence: None)
  Receive Date: 20050105
  Receipt Date: 20050105
  Transmission Date: 20050727
  Serious: Yes (Life-Threatening)
  Sender: FDA-Public Use
  Company Number: None

PATIENT
  Age: 66 Year
  Sex: Female
  Weight: 119.5 kg

DRUGS (18)
  1. LEVAQUIN [Suspect]
     Indication: PNEUMONIA
     Dosage: 400MG   DAILY   INTRAVENOU
     Route: 042
     Dates: start: 20041231, end: 20041231
  2. LEVAQUIN [Suspect]
     Indication: URINARY TRACT INFECTION
     Dosage: 400MG   DAILY   INTRAVENOU
     Route: 042
     Dates: start: 20041231, end: 20041231
  3. NORMAL SALINE [Concomitant]
  4. GLUCOPHAGE [Concomitant]
  5. ASPIRIN [Concomitant]
  6. METOPROLOL [Concomitant]
  7. PHENYTOIN [Concomitant]
  8. LISINOPRIL [Concomitant]
  9. NEURONTIN [Concomitant]
  10. HYDROCHLOROTHIAZIDE [Concomitant]
  11. BUSPAR [Concomitant]
  12. LIPITOR [Concomitant]
  13. DETROL [Concomitant]
  14. TEGRETOL [Concomitant]
  15. TEGRETOL [Concomitant]
  16. CELEBREX [Concomitant]
  17. TYLOX [Concomitant]
  18. MS CONTIN [Concomitant]

REACTIONS (3)
  - COMA [None]
  - RESPIRATORY ARREST [None]
  - TORSADE DE POINTES [None]
